FAERS Safety Report 8478023-5 (Version None)
Quarter: 2012Q2

REPORT INFORMATION
  Report Type: 
  Country: None (occurrence: None)
  Receive Date: 20120629
  Receipt Date: 20120621
  Transmission Date: 20120825
  Serious: Yes (Other)
  Sender: FDA-Public Use
  Company Number: US-PFIZER INC-2012149821

PATIENT
  Sex: Male
  Weight: 111.11 kg

DRUGS (4)
  1. SOLU-MEDROL [Concomitant]
     Indication: MULTIPLE SCLEROSIS
     Dosage: UNK
     Route: 042
     Dates: start: 20030101, end: 20110101
  2. SOLU-MEDROL [Concomitant]
     Dosage: THREE TIMES A WEEK
     Route: 042
     Dates: start: 20120101
  3. BETHANECHOL [Concomitant]
     Indication: BLADDER DISORDER
     Dosage: 25 MG, 1X/DAY
  4. PREPARATION H HEMORRHOIDAL SUPPOSITORIES [Suspect]
     Indication: CONSTIPATION
     Dosage: UNKNOWN DOSE, 1X/DAY
     Route: 054
     Dates: start: 20120620, end: 20120620

REACTIONS (6)
  - APPLICATION SITE IRRITATION [None]
  - ANORECTAL DISORDER [None]
  - FEELING ABNORMAL [None]
  - ABDOMINAL DISCOMFORT [None]
  - RECTAL HAEMORRHAGE [None]
  - ABDOMINAL DISTENSION [None]
